FAERS Safety Report 17238236 (Version 1)
Quarter: 2020Q1

REPORT INFORMATION
  Report Type: Spontaneous
  Country: GB (occurrence: GB)
  Receive Date: 20200106
  Receipt Date: 20200106
  Transmission Date: 20200409
  Serious: Yes (Other)
  Sender: FDA-Public Use
  Company Number: GB-AMERICAN REGENT INC-2020000032

PATIENT
  Age: 48 Year
  Sex: Female
  Weight: 77 kg

DRUGS (1)
  1. FERINJECT [Suspect]
     Active Substance: FERRIC CARBOXYMALTOSE
     Indication: MENORRHAGIA
     Dosage: 1 GRAM
     Route: 051
     Dates: start: 20191126, end: 20191126

REACTIONS (2)
  - Swelling face [Recovered/Resolved]
  - Headache [Recovered/Resolved]

NARRATIVE: CASE EVENT DATE: 20191126
